FAERS Safety Report 8181971-7 (Version None)
Quarter: 2012Q1

REPORT INFORMATION
  Report Type: 
  Country: None (occurrence: None)
  Receive Date: 20120302
  Receipt Date: 20120227
  Transmission Date: 20120608
  Serious: Yes (Other)
  Sender: FDA-Public Use
  Company Number: IN-ABBOTT-12P-078-0903452-00

PATIENT
  Age: 19 Year
  Sex: Male

DRUGS (1)
  1. VALPROATE SODIUM [Suspect]
     Indication: IDIOPATHIC GENERALISED EPILEPSY

REACTIONS (2)
  - CEREBELLAR SYNDROME [None]
  - HYPERAMMONAEMIC ENCEPHALOPATHY [None]
